FAERS Safety Report 7297039-8 (Version None)
Quarter: 2011Q1

REPORT INFORMATION
  Report Type: 
  Country: None (occurrence: None)
  Receive Date: 20110216
  Receipt Date: 20110204
  Transmission Date: 20110831
  Serious: Yes (Hospitalization)
  Sender: FDA-Public Use
  Company Number: US-JNJFOC-20110202141

PATIENT
  Sex: Female

DRUGS (10)
  1. ATIVAN [Concomitant]
     Route: 048
  2. NORCO [Concomitant]
     Indication: PAIN
     Route: 048
  3. TEGRETOL [Concomitant]
     Route: 048
  4. REMERON [Concomitant]
     Route: 048
  5. ZOFRAN [Concomitant]
     Route: 048
  6. INVEGA [Suspect]
     Indication: DEMENTIA
     Route: 048
  7. AMBIEN [Concomitant]
     Indication: SLEEP DISORDER
     Route: 048
  8. SYNTHROID [Concomitant]
     Route: 048
  9. GEODON [Concomitant]
     Route: 048
  10. REGLAN [Concomitant]
     Route: 048

REACTIONS (2)
  - OFF LABEL USE [None]
  - AGITATION [None]
